FAERS Safety Report 13251788 (Version 5)
Quarter: 2021Q4

REPORT INFORMATION
  Report Type: Spontaneous
  Country: US (occurrence: US)
  Receive Date: 20170220
  Receipt Date: 20211013
  Transmission Date: 20220303
  Serious: No
  Sender: FDA-Public Use
  Company Number: US-PFIZER INC-2017070109

PATIENT
  Age: 75 Year
  Sex: Female
  Weight: 90 kg

DRUGS (7)
  1. LYRICA [Suspect]
     Active Substance: PREGABALIN
     Indication: Fibromyalgia
     Dosage: 25 MG
  2. LYRICA [Suspect]
     Active Substance: PREGABALIN
     Indication: Neuropathy peripheral
     Dosage: 50 MG
  3. LYRICA [Suspect]
     Active Substance: PREGABALIN
     Dosage: 75 MG, 2X/DAY
     Route: 048
  4. LYRICA [Suspect]
     Active Substance: PREGABALIN
     Dosage: 100 MG, 2X/DAY
     Route: 048
  5. LISINOPRIL [Concomitant]
     Active Substance: LISINOPRIL
     Dosage: 5 MG, 1X/DAY
  6. MOBIC [Concomitant]
     Active Substance: MELOXICAM
     Indication: Arthritis
     Dosage: UNK UNK, 2X/DAY
  7. AEROBID [Concomitant]
     Active Substance: FLUNISOLIDE
     Indication: Asthma
     Dosage: 2 DF, 2X/DAY

REACTIONS (5)
  - Breast pain [Unknown]
  - Intentional product use issue [Unknown]
  - Fibromyalgia [Unknown]
  - Balance disorder [Unknown]
  - Gait disturbance [Unknown]
